FAERS Safety Report 7873139-6 (Version None)
Quarter: 2011Q4

REPORT INFORMATION
  Report Type: 
  Country: None (occurrence: None)
  Receive Date: 20111027
  Receipt Date: 20111014
  Transmission Date: 20120403
  Serious: Yes (Life-Threatening, Hospitalization)
  Sender: FDA-Public Use
  Company Number: S06-TUR-00990-01

PATIENT
  Age: 35 Year
  Sex: Female

DRUGS (2)
  1. MEMANTINE HYDROCHLORIDE [Suspect]
     Dosage: (2000 MG,ONCE),ORAL
     Route: 048
  2. ANTIDIABETIC(ORAL ANTIDIABETICS)(ORAL ANTIDIABETICS) [Concomitant]

REACTIONS (15)
  - COMA [None]
  - TOXICITY TO VARIOUS AGENTS [None]
  - HYPERTENSION [None]
  - NYSTAGMUS [None]
  - MYDRIASIS [None]
  - RESPIRATORY ALKALOSIS [None]
  - SUICIDE ATTEMPT [None]
  - INTENTIONAL OVERDOSE [None]
  - HEADACHE [None]
  - DIZZINESS [None]
  - DIPLOPIA [None]
  - CONVULSION [None]
  - AGITATION [None]
  - SELF-MEDICATION [None]
  - TACHYCARDIA [None]
